FAERS Safety Report 25532462 (Version 1)
Quarter: 2025Q3

REPORT INFORMATION
  Report Type: Spontaneous
  Country: GB (occurrence: GB)
  Receive Date: 20250709
  Receipt Date: 20250709
  Transmission Date: 20251021
  Serious: Yes (Death, Other)
  Sender: REGENERON
  Company Number: GB-SA-2025SA190585

PATIENT
  Age: 81 Year
  Sex: Male

DRUGS (1)
  1. PRALUENT [Suspect]
     Active Substance: ALIROCUMAB
     Indication: Type IIa hyperlipidaemia
     Dosage: 150MG, QOW, SOLUTION FOR INJECTION
     Route: 058
     Dates: start: 20250507, end: 2025

REACTIONS (1)
  - Cardiac arrest [Fatal]

NARRATIVE: CASE EVENT DATE: 20250703
